FAERS Safety Report 20290353 (Version 1)
Quarter: 2022Q1

REPORT INFORMATION
  Report Type: Spontaneous
  Country: IN (occurrence: IN)
  Receive Date: 20220104
  Receipt Date: 20220104
  Transmission Date: 20220423
  Serious: Yes (Hospitalization, Other)
  Sender: FDA-Public Use
  Company Number: IN-WOCKHARDT BIO AG-2021WBA000007

PATIENT
  Age: 46 Year
  Sex: Male

DRUGS (2)
  1. IMATINIB [Suspect]
     Active Substance: IMATINIB
     Indication: Chronic myeloid leukaemia
     Dosage: 400 MILLIGRAM, QD
     Route: 065
     Dates: start: 20210106
  2. OXYCODONE [Concomitant]
     Active Substance: OXYCODONE
     Indication: Myalgia
     Route: 065

REACTIONS (1)
  - Blast cell crisis [Unknown]
